FAERS Safety Report 8994374 (Version 2)
Quarter: 2013Q2

REPORT INFORMATION
  Report Type: Spontaneous
  Country: US (occurrence: US)
  Receive Date: 20130102
  Receipt Date: 20130404
  Transmission Date: 20140414
  Serious: No
  Sender: FDA-Public Use
  Company Number: US-AMGEN-USASP2012080917

PATIENT
  Age: 78 Year
  Sex: Male
  Weight: 114.74 kg

DRUGS (4)
  1. ENBREL [Suspect]
     Indication: RHEUMATOID ARTHRITIS
     Dosage: 50 MG, QWK
     Route: 058
     Dates: start: 201205
  2. METHOTREXATE [Concomitant]
     Dosage: 20 MG, QWK
     Route: 048
  3. ASPIRIN [Concomitant]
     Dosage: 81 MG, QD
  4. ZOCOR [Concomitant]
     Dosage: 10 MG, QD

REACTIONS (4)
  - Contusion [Recovered/Resolved]
  - Musculoskeletal stiffness [Not Recovered/Not Resolved]
  - Blood glucose decreased [Not Recovered/Not Resolved]
  - Hypokinesia [Not Recovered/Not Resolved]
